FAERS Safety Report 5738786-6 (Version None)
Quarter: 2008Q2

REPORT INFORMATION
  Report Type: 
  Country: None (occurrence: None)
  Receive Date: 20080515
  Receipt Date: 20080228
  Transmission Date: 20081010
  Serious: No
  Sender: FDA-Public Use
  Company Number: A0712474A

PATIENT
  Age: 77 Year
  Sex: Female

DRUGS (4)
  1. VERAMYST [Suspect]
     Route: 045
     Dates: start: 20071001, end: 20080213
  2. FOSAMAX [Concomitant]
  3. PLAVIX [Concomitant]
  4. SINGULAIR [Concomitant]

REACTIONS (2)
  - NASAL DISCOMFORT [None]
  - NASAL ULCER [None]
